FAERS Safety Report 6611481-7 (Version None)
Quarter: 2010Q1

REPORT INFORMATION
  Report Type: 
  Country: None (occurrence: None)
  Receive Date: 20100222
  Receipt Date: 20100210
  Transmission Date: 20100710
  Serious: Yes (Hospitalization, Congenital Anomaly)
  Sender: FDA-Public Use
  Company Number: 2010S1000123

PATIENT
  Age: 22 Month
  Sex: Female

DRUGS (1)
  1. ZIPSOR (DICLOFENAC POTASSIUM) [Suspect]
     Dosage: TRPL
     Route: 064

REACTIONS (6)
  - ANAL STENOSIS [None]
  - APLASIA CUTIS CONGENITA [None]
  - CONGENITAL ANOMALY [None]
  - CONGENITAL JOINT MALFORMATION [None]
  - FOOT DEFORMITY [None]
  - MATERNAL DRUGS AFFECTING FOETUS [None]
